FAERS Safety Report 18674027 (Version 2)
Quarter: 2021Q1

REPORT INFORMATION
  Report Type: Spontaneous
  Country: IT (occurrence: IT)
  Receive Date: 20201229
  Receipt Date: 20210101
  Transmission Date: 20210419
  Serious: Yes (Hospitalization)
  Sender: FDA-Public Use
  Company Number: IT-ACCORD-212422

PATIENT
  Age: 3 Year
  Sex: Male
  Weight: 15 kg

DRUGS (15)
  1. ANTRA [Concomitant]
     Active Substance: OMEPRAZOLE
  2. BACTRIM [Concomitant]
     Active Substance: SULFAMETHOXAZOLE\TRIMETHOPRIM
  3. PERFALGAN [Concomitant]
     Active Substance: ACETAMINOPHEN
  4. VINCRISTINE [Suspect]
     Active Substance: VINCRISTINE
     Indication: NEUROBLASTOMA
     Route: 042
     Dates: start: 20200925, end: 20200926
  5. NORMASE [Concomitant]
  6. DECADRON [Concomitant]
     Active Substance: DEXAMETHASONE
  7. VEPESID [Suspect]
     Active Substance: ETOPOSIDE
     Indication: NEUROBLASTOMA
     Route: 042
     Dates: start: 20201026, end: 20201026
  8. TRIMETON [Concomitant]
     Active Substance: CHLORPHENIRAMINE MALEATE
  9. ZOFRAN [Concomitant]
     Active Substance: ONDANSETRON HYDROCHLORIDE
  10. CARBOPLATIN. [Suspect]
     Active Substance: CARBOPLATIN
     Indication: NEUROBLASTOMA
     Route: 042
     Dates: start: 20201026, end: 20201026
  11. VINCRISTINE [Suspect]
     Active Substance: VINCRISTINE
     Indication: NEUROBLASTOMA
     Route: 042
     Dates: start: 20201026, end: 20201027
  12. FASTURTEC [Concomitant]
     Active Substance: RASBURICASE
  13. CARBOPLATIN. [Suspect]
     Active Substance: CARBOPLATIN
     Indication: NEUROBLASTOMA
     Route: 042
     Dates: start: 20200925, end: 20200925
  14. VEPESID [Suspect]
     Active Substance: ETOPOSIDE
     Indication: NEUROBLASTOMA
     Route: 042
     Dates: start: 20200925, end: 20200925
  15. CLEXANE [Concomitant]
     Active Substance: ENOXAPARIN SODIUM

REACTIONS (3)
  - Tachycardia [Recovering/Resolving]
  - Aplastic anaemia [Recovering/Resolving]
  - Hypertension [Recovering/Resolving]

NARRATIVE: CASE EVENT DATE: 20201004
